FAERS Safety Report 5770620-0 (Version None)
Quarter: 2008Q2

REPORT INFORMATION
  Report Type: 
  Country: None (occurrence: None)
  Receive Date: 20080613
  Receipt Date: 20080506
  Transmission Date: 20081010
  Serious: No
  Sender: FDA-Public Use
  Company Number: US-ABBOTT-08P-163-0450932-00

PATIENT
  Sex: Male

DRUGS (2)
  1. HUMIRA [Suspect]
     Indication: DRUG USE FOR UNKNOWN INDICATION
     Dates: end: 20071001
  2. HUMIRA [Suspect]
     Dates: start: 20071101

REACTIONS (4)
  - ARTHRALGIA [None]
  - INFECTION [None]
  - JOINT EFFUSION [None]
  - OEDEMA PERIPHERAL [None]
